FAERS Safety Report 6133408-7 (Version None)
Quarter: 2009Q1

REPORT INFORMATION
  Report Type: 
  Country: None (occurrence: None)
  Receive Date: 20090326
  Receipt Date: 20090325
  Transmission Date: 20090719
  Serious: Yes (Hospitalization)
  Sender: FDA-Public Use
  Company Number: PHHO2002DE07171

PATIENT
  Sex: Female
  Weight: 67 kg

DRUGS (1)
  1. CGS 20267 T30748+ [Suspect]
     Indication: BREAST CANCER
     Dosage: 2.5 MG, QD
     Route: 048
     Dates: start: 19990310

REACTIONS (2)
  - OOPHORECTOMY BILATERAL [None]
  - OVARIAN NEOPLASM [None]
